FAERS Safety Report 22320778 (Version 1)
Quarter: 2023Q2

REPORT INFORMATION
  Report Type: Spontaneous
  Country: US (occurrence: None)
  Receive Date: 20230512
  Receipt Date: 20230512
  Transmission Date: 20230721
  Serious: No
  Sender: FDA-Public Use
  Company Number: None

PATIENT
  Age: 36 Year
  Sex: Female

DRUGS (1)
  1. SOFOSBUVIR AND VELPATASVIR [Suspect]
     Active Substance: SOFOSBUVIR\VELPATASVIR
     Dosage: OTHER QUANTITY : 400-100;?FREQUENCY : DAILY;?
     Route: 048
     Dates: start: 202212

REACTIONS (3)
  - Nausea [None]
  - Heart rate decreased [None]
  - Therapy interrupted [None]

NARRATIVE: CASE EVENT DATE: 20230401
